FAERS Safety Report 5650472-X (Version None)
Quarter: 2008Q1

REPORT INFORMATION
  Report Type: 
  Country: None (occurrence: None)
  Receive Date: 20080305
  Receipt Date: 20080229
  Transmission Date: 20080703
  Serious: Yes (Other)
  Sender: FDA-Public Use
  Company Number: CH-WYE-G01185608

PATIENT

DRUGS (1)
  1. CHAPSTICK [Suspect]

REACTIONS (1)
  - DEPENDENCE [None]
